FAERS Safety Report 9325644 (Version 2)
Quarter: 2013Q2

REPORT INFORMATION
  Report Type: Report from Study
  Country: CA (occurrence: CA)
  Receive Date: 20130604
  Receipt Date: 20130626
  Transmission Date: 20140414
  Serious: Yes (Death, Other)
  Sender: FDA-Public Use
  Company Number: CA-ROCHE-657660

PATIENT
  Age: 28 Year
  Sex: Female
  Weight: 52 kg

DRUGS (5)
  1. AVASTIN [Suspect]
     Indication: COLON CANCER
     Route: 042
  2. AVASTIN [Suspect]
     Route: 042
  3. AVASTIN [Suspect]
     Route: 042
     Dates: start: 20120424, end: 20120724
  4. 5-FU [Concomitant]
     Indication: COLORECTAL CANCER
     Route: 065
  5. IRINOTECAN [Concomitant]
     Indication: COLORECTAL CANCER
     Route: 065

REACTIONS (4)
  - Disease progression [Fatal]
  - White blood cell count decreased [Not Recovered/Not Resolved]
  - Full blood count decreased [Unknown]
  - Metastases to liver [Unknown]
